FAERS Safety Report 22106504 (Version 1)
Quarter: 2023Q1

REPORT INFORMATION
  Report Type: Report from Study
  Country: US (occurrence: US)
  Receive Date: 20230317
  Receipt Date: 20230317
  Transmission Date: 20230418
  Serious: Yes (Life-Threatening, Hospitalization)
  Sender: FDA-Public Use
  Company Number: US-SA-SAC20230310000655

PATIENT
  Age: 66 Year
  Sex: Male

DRUGS (22)
  1. DOCETAXEL [Suspect]
     Active Substance: DOCETAXEL
     Indication: Non-small cell lung cancer metastatic
     Dosage: 152 MG, Q3W
     Route: 042
     Dates: start: 20221021, end: 20230113
  2. DOCETAXEL [Suspect]
     Active Substance: DOCETAXEL
     Dosage: 109 MG, Q3W, ADMINISTERED IV ON DAY 5 EVERY 21 DAYS
     Route: 042
     Dates: start: 20230113
  3. ESCITALOPRAM [Concomitant]
     Active Substance: ESCITALOPRAM OXALATE
     Indication: Anxiety
     Dosage: 20 MG, QD
     Route: 048
     Dates: start: 200506
  4. ESCITALOPRAM [Concomitant]
     Active Substance: ESCITALOPRAM OXALATE
     Indication: Depression
  5. SENNA-S [DOCUSATE SODIUM;SENNA ALEXANDRINA] [Concomitant]
     Indication: Constipation
     Dosage: 2 DF, BID
     Route: 048
     Dates: start: 20220830
  6. TRAMADOL [Concomitant]
     Active Substance: TRAMADOL
     Indication: Fracture
     Dosage: 100 MG, Q6H
     Route: 048
     Dates: start: 20220816
  7. TRAMADOL [Concomitant]
     Active Substance: TRAMADOL
     Dosage: 300 MG, QD
     Route: 048
     Dates: start: 20221222
  8. XARELTO [Concomitant]
     Active Substance: RIVAROXABAN
     Indication: Anticoagulant therapy
     Dosage: 20 MG, QD
     Route: 048
     Dates: start: 20220920
  9. ALBUTEROL SULFATE [Concomitant]
     Active Substance: ALBUTEROL SULFATE
     Indication: Chronic obstructive pulmonary disease
     Dosage: 90 UG, PRN
     Route: 055
     Dates: start: 201605
  10. OMEPRAZOLE [Concomitant]
     Active Substance: OMEPRAZOLE
     Indication: Gastrooesophageal reflux disease
     Dosage: 40 MG, QD
     Route: 048
     Dates: start: 200505
  11. TYLENOL [Concomitant]
     Active Substance: ACETAMINOPHEN
     Indication: Fracture
     Dosage: 650 MG, Q6H
     Route: 048
     Dates: start: 20220816
  12. DEXAMETHASONE [Concomitant]
     Active Substance: DEXAMETHASONE
     Indication: Prophylaxis
     Dosage: 20 MG, BID
     Route: 048
     Dates: start: 20221020
  13. FLUTICASONE FUROATE\UMECLIDINIUM BROMIDE\VILANTEROL TRIFENATATE [Concomitant]
     Active Substance: FLUTICASONE FUROATE\UMECLIDINIUM BROMIDE\VILANTEROL TRIFENATATE
     Indication: Chronic obstructive pulmonary disease
     Dosage: 1 DF, QD
     Route: 055
     Dates: start: 20221109
  14. OXYCODONE [Concomitant]
     Active Substance: OXYCODONE
     Indication: Pathological fracture
     Dosage: 10 MG, PRN
     Route: 048
     Dates: start: 20221222
  15. OXYCODONE [Concomitant]
     Active Substance: OXYCODONE
     Indication: Pain
  16. MELATONIN GUMMY [Concomitant]
     Indication: Insomnia
     Dosage: 5 MG, QD
     Route: 048
     Dates: start: 20221109
  17. LUBIPROSTONE [Concomitant]
     Active Substance: LUBIPROSTONE
     Indication: Constipation
     Dosage: 24 UG, BID
     Route: 048
     Dates: start: 20221219
  18. COMPAZINE [Concomitant]
     Active Substance: PROCHLORPERAZINE MALEATE
     Indication: Nausea
     Dosage: 10 MG, Q6H
     Dates: start: 20221220
  19. NEULASTA [Concomitant]
     Active Substance: PEGFILGRASTIM
     Indication: Prophylaxis
     Dosage: 6 MG, Q3W
     Route: 058
     Dates: start: 20221223
  20. FUROSEMIDE [Concomitant]
     Active Substance: FUROSEMIDE
     Indication: Prophylaxis
     Dosage: 40 MG, QD
     Route: 048
     Dates: start: 20230111, end: 20230114
  21. LEVOFLOXACIN [Concomitant]
     Active Substance: LEVOFLOXACIN
     Indication: Haemophilus infection
     Dosage: 500 MG, QD
     Route: 042
     Dates: start: 20230122
  22. VANCOMYCIN [Concomitant]
     Active Substance: VANCOMYCIN
     Indication: Haemophilus infection
     Dosage: 1000 MG, Q12H
     Route: 042
     Dates: start: 20230122

REACTIONS (3)
  - Acute respiratory failure [Recovered/Resolved]
  - Hypervolaemia [Unknown]
  - Pneumonia [Unknown]

NARRATIVE: CASE EVENT DATE: 20230121
